FAERS Safety Report 8053295-X (Version None)
Quarter: 2012Q1

REPORT INFORMATION
  Report Type: 
  Country: None (occurrence: None)
  Receive Date: 20120118
  Receipt Date: 20120106
  Transmission Date: 20120608
  Serious: Yes (Other)
  Sender: FDA-Public Use
  Company Number: FR-UCBSA-045851

PATIENT
  Age: 66 Year
  Sex: Female

DRUGS (9)
  1. ARAVA [Concomitant]
     Route: 048
  2. ACETAMINOPHEN [Concomitant]
     Dosage: AS REQUIRED
     Route: 048
  3. KETUM GEL [Concomitant]
     Dosage: DOSE:OCCASIONALLY: ROUTE:LOCAL
  4. NEURONTIN [Concomitant]
     Dosage: DOSE:1800 MG
     Route: 048
  5. FOSAMAX [Concomitant]
     Indication: OSTEOPOROSIS
     Route: 048
  6. CIMZIA [Suspect]
     Indication: RHEUMATOID ARTHRITIS
     Dosage: UNKNOWN DOSE
     Route: 058
     Dates: start: 20110502, end: 20110906
  7. ACETAMINOPHEN AND TRAMADOL HCL [Concomitant]
     Indication: PAIN
     Route: 048
  8. FIXICAL VIT D3 [Concomitant]
     Indication: OSTEOPOROSIS
     Route: 048
  9. CLONAZEPAM [Concomitant]
     Dosage: 5 ORAL DROPS AT NIGHT
     Route: 048

REACTIONS (1)
  - PSORIASIS [None]
